FAERS Safety Report 15075798 (Version 4)
Quarter: 2019Q4

REPORT INFORMATION
  Report Type: Spontaneous
  Country: US (occurrence: US)
  Receive Date: 20180627
  Receipt Date: 20191122
  Transmission Date: 20200122
  Serious: No
  Sender: FDA-Public Use
  Company Number: US-SA-2018SA160796

PATIENT
  Age: 55 Year
  Sex: Female

DRUGS (1)
  1. AUBAGIO [Suspect]
     Active Substance: TERIFLUNOMIDE
     Indication: MULTIPLE SCLEROSIS
     Dosage: 14 MG, QD
     Route: 048
     Dates: start: 20160802

REACTIONS (4)
  - Fall [Not Recovered/Not Resolved]
  - Depression [Unknown]
  - Mobility decreased [Not Recovered/Not Resolved]
  - Surgery [Unknown]

NARRATIVE: CASE EVENT DATE: 20180908
